FAERS Safety Report 8852508 (Version 1)
Quarter: 2012Q4

REPORT INFORMATION
  Report Type: 
  Country: JP (occurrence: JP)
  Receive Date: 20121022
  Receipt Date: 20121022
  Transmission Date: 20130627
  Serious: Yes (Other)
  Sender: FDA-Public Use
  Company Number: JP-ROCHE-1146739

PATIENT
  Age: 61 Year
  Sex: Male

DRUGS (1)
  1. TAMIFLU [Suspect]
     Indication: PRODUCT USED FOR UNKNOWN INDICATION
     Dosage: Dosage is uncertain.
     Route: 048
     Dates: start: 200912, end: 200912

REACTIONS (3)
  - Erythema [Unknown]
  - Drug eruption [Unknown]
  - Agranulocytosis [Unknown]
